FAERS Safety Report 13748731 (Version 6)
Quarter: 2019Q4

REPORT INFORMATION
  Report Type: Spontaneous
  Country: AT (occurrence: AT)
  Receive Date: 20170713
  Receipt Date: 20191126
  Transmission Date: 20200122
  Serious: Yes (Other)
  Sender: FDA-Public Use
  Company Number: AT-ELI_LILLY_AND_COMPANY-AT201706013544

PATIENT
  Age: 32 Year
  Sex: Male

DRUGS (10)
  1. RISPERDAL [Suspect]
     Active Substance: RISPERIDONE
     Indication: PRODUCT USED FOR UNKNOWN INDICATION
     Dosage: 6 MG, DAILY
     Dates: start: 20170228, end: 20170302
  2. TEMESTA                            /00273201/ [Suspect]
     Active Substance: LORAZEPAM
     Dosage: UNK, PRN
     Route: 065
     Dates: start: 20170304, end: 20170319
  3. ZYPREXA [Suspect]
     Active Substance: OLANZAPINE
     Dosage: 15 MG, UNKNOWN
     Route: 065
     Dates: start: 20170310, end: 20170328
  4. RISPERDAL [Suspect]
     Active Substance: RISPERIDONE
     Dosage: 1 MG, DAILY
     Route: 065
     Dates: start: 20170224, end: 20170303
  5. RISPERIDON [Concomitant]
     Active Substance: RISPERIDONE
     Indication: PRODUCT USED FOR UNKNOWN INDICATION
     Dosage: 6 MG, UNKNOWN
     Route: 065
     Dates: start: 20170228, end: 20170306
  6. ZYPREXA [Suspect]
     Active Substance: OLANZAPINE
     Dosage: 10 MG, UNKNOWN
     Route: 065
     Dates: start: 20170329
  7. TEMESTA                            /00273201/ [Suspect]
     Active Substance: LORAZEPAM
     Indication: PRODUCT USED FOR UNKNOWN INDICATION
     Dosage: UNK, PRN
     Route: 065
     Dates: start: 20170224, end: 20170303
  8. ZYPREXA [Suspect]
     Active Substance: OLANZAPINE
     Indication: PRODUCT USED FOR UNKNOWN INDICATION
     Dosage: 15 MG, UNKNOWN
     Route: 065
     Dates: start: 20170228, end: 20170303
  9. ZYPREXA [Suspect]
     Active Substance: OLANZAPINE
     Dosage: 20 MG, UNKNOWN
     Route: 065
     Dates: start: 20170304, end: 20170309
  10. RISPERDAL [Suspect]
     Active Substance: RISPERIDONE
     Dosage: UNK, UNKNOWN
     Route: 065
     Dates: start: 20170302, end: 20170306

REACTIONS (4)
  - Orgasmic sensation decreased [Recovered/Resolved]
  - Somnolence [Unknown]
  - Erectile dysfunction [Recovered/Resolved]
  - Fatigue [Unknown]

NARRATIVE: CASE EVENT DATE: 201703
